FAERS Safety Report 6023604-1 (Version None)
Quarter: 2008Q4

REPORT INFORMATION
  Report Type: 
  Country: None (occurrence: None)
  Receive Date: 20081226
  Receipt Date: 20081226
  Transmission Date: 20090506
  Serious: Yes (Hospitalization, Disabling)
  Sender: FDA-Public Use
  Company Number: None

PATIENT
  Age: 27 Year
  Sex: Female
  Weight: 50.8029 kg

DRUGS (1)
  1. MIRENA [Suspect]
     Indication: CONTRACEPTION

REACTIONS (5)
  - BACK PAIN [None]
  - CERVIX DISORDER [None]
  - DYSPAREUNIA [None]
  - UTERINE ABSCESS [None]
  - UTERINE INFECTION [None]
